FAERS Safety Report 21501797 (Version 2)
Quarter: 2022Q4

REPORT INFORMATION
  Report Type: Spontaneous
  Country: US (occurrence: None)
  Receive Date: 20221025
  Receipt Date: 20221115
  Transmission Date: 20230112
  Serious: Yes (Other)
  Sender: FDA-Public Use
  Company Number: US-ROCHE-3173300

PATIENT
  Sex: Male

DRUGS (1)
  1. ESBRIET [Suspect]
     Active Substance: PIRFENIDONE
     Indication: Idiopathic pulmonary fibrosis
     Route: 048
     Dates: start: 20210427

REACTIONS (4)
  - Mass [Unknown]
  - Throat cancer [Unknown]
  - Rash [Unknown]
  - Illness [Unknown]
